FAERS Safety Report 19223650 (Version 1)
Quarter: 2021Q2

REPORT INFORMATION
  Report Type: Spontaneous
  Country: US (occurrence: US)
  Receive Date: 20210505
  Receipt Date: 20210505
  Transmission Date: 20210717
  Serious: No
  Sender: FDA-Public Use
  Company Number: US-ROCHE-2757408

PATIENT
  Sex: Female

DRUGS (17)
  1. HYDROCODONE [Concomitant]
     Active Substance: HYDROCODONE
  2. LOSARTAN POTASSIUM. [Concomitant]
     Active Substance: LOSARTAN POTASSIUM
  3. TRAZODONE HYDROCHLORIDE. [Concomitant]
     Active Substance: TRAZODONE HYDROCHLORIDE
  4. VITAMINE D [Concomitant]
     Active Substance: CHOLECALCIFEROL
  5. ALBUTEROL SULFATE. [Concomitant]
     Active Substance: ALBUTEROL SULFATE
  6. ATORVASTATIN [Concomitant]
     Active Substance: ATORVASTATIN
  7. PROMETHAZINE [Concomitant]
     Active Substance: PROMETHAZINE HYDROCHLORIDE
  8. ESBRIET [Suspect]
     Active Substance: PIRFENIDONE
     Dosage: 3 TABLETS 3 TIMES A DAY WITH MEALS
     Route: 048
  9. BREO ELLIPTA [Concomitant]
     Active Substance: FLUTICASONE FUROATE\VILANTEROL TRIFENATATE
  10. ESBRIET [Suspect]
     Active Substance: PIRFENIDONE
     Indication: IDIOPATHIC PULMONARY FIBROSIS
     Dosage: ONE TABLET 3 TIMES A DAY FOR ONE WEEK WITH MEALS
     Route: 048
     Dates: start: 202010
  11. ESBRIET [Suspect]
     Active Substance: PIRFENIDONE
     Dosage: ONE TABLET 3 TIMES A DAY
     Route: 048
  12. CARVEDILOL. [Concomitant]
     Active Substance: CARVEDILOL
  13. ESOMEPRAZOLE. [Concomitant]
     Active Substance: ESOMEPRAZOLE MAGNESIUM
  14. ESBRIET [Suspect]
     Active Substance: PIRFENIDONE
     Dosage: TWO TABLETS THREE TIMES A DAY WITH MEALS
     Route: 048
  15. ASPIRIN. [Concomitant]
     Active Substance: ASPIRIN
  16. DICYCLOMINE [Concomitant]
     Active Substance: DICYCLOMINE HYDROCHLORIDE
  17. METHOCARBAMOL. [Concomitant]
     Active Substance: METHOCARBAMOL

REACTIONS (2)
  - Somnolence [Not Recovered/Not Resolved]
  - Asthenia [Not Recovered/Not Resolved]
